FAERS Safety Report 9928367 (Version 1)
Quarter: 2014Q1

REPORT INFORMATION
  Report Type: Spontaneous
  Country: US (occurrence: US)
  Receive Date: 20140227
  Receipt Date: 20140227
  Transmission Date: 20141002
  Serious: Yes (Other)
  Sender: FDA-Public Use
  Company Number: US-RB-063185-14

PATIENT
  Sex: Female

DRUGS (1)
  1. MUCINEX DM [Suspect]
     Indication: PRODUCT USED FOR UNKNOWN INDICATION
     Dosage: TOOK 1 TABLET THEN 3 HOURS LATER TOOK AGAIN 1 TABLET.
     Route: 048
     Dates: start: 20140216

REACTIONS (3)
  - Epistaxis [Recovered/Resolved]
  - Fatigue [Unknown]
  - Inappropriate schedule of drug administration [Recovered/Resolved]
